FAERS Safety Report 24384460 (Version 2)
Quarter: 2024Q4

REPORT INFORMATION
  Report Type: Spontaneous
  Country: FR (occurrence: FR)
  Receive Date: 20241001
  Receipt Date: 20241021
  Transmission Date: 20250114
  Serious: Yes (Life-Threatening, Other)
  Sender: AMERICAN REGENT
  Company Number: FR-AMERICAN REGENT INC-2024003626

PATIENT
  Age: 80 Year
  Sex: Male

DRUGS (1)
  1. VENOFER [Suspect]
     Active Substance: IRON SUCROSE
     Indication: Anaemia
     Dosage: 200 MILLIGRAM, 1 IN 1 TOTAL
     Dates: start: 20240827, end: 20240827

REACTIONS (3)
  - Electrocardiogram ST segment depression [Recovered/Resolved]
  - Hypersensitivity [Recovered/Resolved]
  - Vasospasm [Recovered/Resolved]

NARRATIVE: CASE EVENT DATE: 20240827
